FAERS Safety Report 4791293-X (Version None)
Quarter: 2005Q4

REPORT INFORMATION
  Report Type: 
  Country: None (occurrence: None)
  Receive Date: 20051005
  Receipt Date: 20050922
  Transmission Date: 20060501
  Serious: No
  Sender: FDA-Public Use
  Company Number: 2005-06-2152

PATIENT
  Age: 15 Year
  Sex: Female
  Weight: 53 kg

DRUGS (5)
  1. AERIUS (DESLORATADINE) [Suspect]
     Indication: RHINITIS ALLERGIC
     Dosage: SEE IMAGE
     Dates: start: 20050620, end: 20050625
  2. AERIUS (DESLORATADINE) [Suspect]
     Indication: RHINITIS ALLERGIC
     Dosage: SEE IMAGE
     Dates: start: 20050627, end: 20050627
  3. AERIUS (DESLORATADINE) [Suspect]
     Indication: RHINITIS ALLERGIC
     Dosage: SEE IMAGE
     Dates: start: 20050628, end: 20050628
  4. AERIUS (DESLORATADINE) [Suspect]
     Indication: RHINITIS ALLERGIC
     Dosage: SEE IMAGE
     Dates: start: 20050620, end: 20050629
  5. BETAMETHASONE SODIUM PHOSPHATE [Suspect]
     Indication: RHINITIS ALLERGIC
     Dosage: 8 MG QD HS INTRAMUSCULAR
     Route: 030
     Dates: start: 20050625

REACTIONS (1)
  - URTICARIA GENERALISED [None]
